FAERS Safety Report 24293311 (Version 1)
Quarter: 2024Q3

REPORT INFORMATION
  Report Type: Spontaneous
  Country: US (occurrence: None)
  Receive Date: 20240906
  Receipt Date: 20240906
  Transmission Date: 20241017
  Serious: No
  Sender: DOMPE FARMACEUTICI
  Company Number: US-FARMAPROD-202308-202312-3817

PATIENT
  Sex: Male

DRUGS (6)
  1. OXERVATE [Suspect]
     Active Substance: CENEGERMIN-BKBJ
     Indication: Neurotrophic keratopathy
     Route: 047
     Dates: start: 20231218
  2. SYSTANE (HYPROMELLOSE 2910 (4000 MPA.S)) [Concomitant]
     Active Substance: HYPROMELLOSE 2910 (4000 MPA.S)
     Dosage: 0.3 %-0.4%
  3. XIIDRA [Concomitant]
     Active Substance: LIFITEGRAST
  4. OMEPRAZOLE [Concomitant]
     Active Substance: OMEPRAZOLE
  5. METOPROLOL-HYDROCHLOROTHIAZIDE [Concomitant]
  6. LOVASTATIN [Concomitant]
     Active Substance: LOVASTATIN

REACTIONS (4)
  - Eyelid pain [Unknown]
  - Ocular hyperaemia [Unknown]
  - Lacrimation increased [Unknown]
  - Eye irritation [Unknown]
